FAERS Safety Report 17365709 (Version 1)
Quarter: 2020Q1

REPORT INFORMATION
  Report Type: Spontaneous
  Country: JP (occurrence: JP)
  Receive Date: 20200204
  Receipt Date: 20200204
  Transmission Date: 20200409
  Serious: Yes (Other)
  Sender: FDA-Public Use
  Company Number: JP-FRESENIUS KABI-FK202001034

PATIENT
  Age: 46 Year
  Sex: Female

DRUGS (5)
  1. RITODRINE [Suspect]
     Active Substance: RITODRINE
     Route: 042
  2. BETAMETHASONE. [Suspect]
     Active Substance: BETAMETHASONE
     Indication: STEROID THERAPY
     Route: 065
  3. SODIUM CHLORIDE. [Suspect]
     Active Substance: SODIUM CHLORIDE
     Indication: PROPHYLAXIS AGAINST DEHYDRATION
     Route: 065
  4. MAGNESIUM SULFATE (MANUFACTURER UNKNOWN) [Suspect]
     Active Substance: MAGNESIUM SULFATE
     Indication: DRUG THERAPY
     Route: 042
  5. RITODRINE [Suspect]
     Active Substance: RITODRINE
     Indication: TOCOLYSIS
     Route: 042

REACTIONS (5)
  - Pulmonary hypertension [Recovered/Resolved]
  - Pulmonary oedema [Recovered/Resolved]
  - Exposure during pregnancy [Recovered/Resolved]
  - Cardiac failure acute [Recovered/Resolved]
  - Premature baby [Recovered/Resolved]
